FAERS Safety Report 12080286 (Version 1)
Quarter: 2016Q1

REPORT INFORMATION
  Report Type: Spontaneous
  Country: US (occurrence: None)
  Receive Date: 20160212
  Receipt Date: 20160212
  Transmission Date: 20160526
  Serious: No
  Sender: FDA-Public Use
  Company Number: None

PATIENT
  Age: 41 Year
  Sex: Female

DRUGS (6)
  1. PREDNISONE. [Concomitant]
     Active Substance: PREDNISONE
  2. BROMOCRIPTIN [Concomitant]
  3. PARLODEL [Concomitant]
     Active Substance: BROMOCRIPTINE MESYLATE
  4. ORENCIA [Suspect]
     Active Substance: ABATACEPT
     Indication: RHEUMATOID ARTHRITIS
     Route: 058
     Dates: start: 20131025
  5. GABAPENTIN. [Concomitant]
     Active Substance: GABAPENTIN
  6. METHOTREXATE [Concomitant]
     Active Substance: METHOTREXATE

REACTIONS (3)
  - Headache [None]
  - Influenza like illness [None]
  - Condition aggravated [None]

NARRATIVE: CASE EVENT DATE: 201602
